FAERS Safety Report 10192885 (Version 1)
Quarter: 2014Q2

REPORT INFORMATION
  Report Type: Spontaneous
  Country: US (occurrence: US)
  Receive Date: 20140523
  Receipt Date: 20140523
  Transmission Date: 20141212
  Serious: Yes (Life-Threatening, Hospitalization, Other)
  Sender: FDA-Public Use
  Company Number: US-ABBVIE-14P-163-1239724-00

PATIENT
  Age: 41 Year
  Sex: 0
  Weight: 113.5 kg

DRUGS (18)
  1. BIAXIN [Suspect]
     Indication: BRONCHITIS
     Dates: start: 20121201, end: 20121205
  2. FLUTICASONE PROPIONATE [Suspect]
     Indication: SINUSITIS
     Dosage: AQUEOUS SPRAY
     Route: 045
     Dates: start: 20121203, end: 20121215
  3. FLOVENT [Suspect]
     Indication: ASTHMA
     Route: 055
  4. SALBUTAMOL SULFATE [Suspect]
     Indication: ASTHMA
     Dosage: UNSPECIFIED INHALER DEVICE
     Route: 055
     Dates: start: 2003
  5. LEVETIRACETAM (FORMULATION UNKNOWN) (LEVETIRACETAM) [Suspect]
     Indication: EPILEPSY
     Dates: start: 2000
  6. DESVENLAFAXINE SUCCINATE [Suspect]
     Indication: POST-TRAUMATIC STRESS DISORDER
     Dosage: FORMULATION UNKNOWN
     Dates: start: 2004
  7. TRAZODONE [Suspect]
     Indication: INSOMNIA
     Dosage: FORMULATION UNKNOWN
     Dates: start: 2002
  8. MONTELUKAST SODIUM [Suspect]
     Indication: ASTHMA
     Dosage: FORMULATION UNKNOWN
     Dates: start: 2004
  9. PSEUDOEPHEDRINE HYDROCHLORIDE [Suspect]
     Indication: SINUS CONGESTION
     Dosage: FORMULATION UNKNOWN
     Dates: start: 2010
  10. TEMAZEPAM [Concomitant]
     Indication: PRODUCT USED FOR UNKNOWN INDICATION
  11. FIORICET [Concomitant]
     Indication: PRODUCT USED FOR UNKNOWN INDICATION
  12. VITAMIN D [Concomitant]
     Indication: PRODUCT USED FOR UNKNOWN INDICATION
  13. MULTIVITAMIN [Concomitant]
     Indication: PRODUCT USED FOR UNKNOWN INDICATION
  14. AMOXICILLIN TRIHYDRATE [Concomitant]
     Indication: PRODUCT USED FOR UNKNOWN INDICATION
  15. PREDNISONE [Concomitant]
     Indication: PRODUCT USED FOR UNKNOWN INDICATION
  16. KEPPRA [Concomitant]
     Indication: PRODUCT USED FOR UNKNOWN INDICATION
  17. PRISTIQ [Concomitant]
     Indication: PRODUCT USED FOR UNKNOWN INDICATION
  18. TRAZODONE [Concomitant]
     Indication: PRODUCT USED FOR UNKNOWN INDICATION

REACTIONS (6)
  - Pre-eclampsia [Recovered/Resolved]
  - Infection [Unknown]
  - Maternal exposure during pregnancy [None]
  - Caesarean section [None]
  - Pregnancy [None]
  - Epistaxis [None]
